FAERS Safety Report 8014406-5 (Version None)
Quarter: 2011Q4

REPORT INFORMATION
  Report Type: 
  Country: None (occurrence: None)
  Receive Date: 20111229
  Receipt Date: 20111220
  Transmission Date: 20120403
  Serious: Yes (Hospitalization)
  Sender: FDA-Public Use
  Company Number: US-ELI_LILLY_AND_COMPANY-US201109008413

PATIENT
  Sex: Male

DRUGS (7)
  1. ZYPREXA [Suspect]
     Indication: SCHIZOPHRENIA, PARANOID TYPE
     Dosage: 20 MG, EACH EVENING
     Route: 048
     Dates: start: 19940101, end: 20110801
  2. SYNTHROID [Concomitant]
  3. TRICOR [Concomitant]
  4. PRAVASTATIN [Concomitant]
  5. ZYPREXA [Suspect]
     Dosage: 20 MG, EACH EVENING
     Route: 048
  6. FLUPHENAZINE [Concomitant]
  7. ZYPREXA [Suspect]
     Dosage: 25 MG, QD
     Route: 048
     Dates: start: 20110901

REACTIONS (8)
  - SCHIZOPHRENIA [None]
  - ANXIETY [None]
  - HYPOTHYROIDISM [None]
  - WEIGHT INCREASED [None]
  - DRUG DOSE OMISSION [None]
  - INCREASED APPETITE [None]
  - OVERDOSE [None]
  - SEDATION [None]
